FAERS Safety Report 8273828-8 (Version None)
Quarter: 2012Q2

REPORT INFORMATION
  Report Type: 
  Country: None (occurrence: None)
  Receive Date: 20120411
  Receipt Date: 20120405
  Transmission Date: 20120825
  Serious: Yes (Other)
  Sender: FDA-Public Use
  Company Number: PHEH2012US007576

PATIENT
  Sex: Female

DRUGS (19)
  1. AVAPRO [Concomitant]
     Dosage: 1 DF, QD
  2. ASPIRIN [Concomitant]
     Dosage: 1 DF, QD
  3. CYMBALTA [Concomitant]
     Dosage: 3 DF, QD
     Route: 048
  4. LOZOL [Concomitant]
     Dosage: 1 DF, QD
     Route: 048
  5. POTASSIUM CHLORIDE [Concomitant]
     Dosage: 1 DF, QD
     Route: 048
  6. KLONOPIN [Concomitant]
     Dosage: 1 DF, QD
     Route: 048
  7. BENTYL [Concomitant]
     Route: 048
  8. AMPYRA [Concomitant]
     Dosage: 1 DF, Q12H
     Route: 048
  9. PROTONIX [Concomitant]
     Dosage: 1 DF, QD
     Route: 048
  10. SINGULAIR [Concomitant]
     Dosage: 1 DF, QD
     Route: 048
  11. NEXIUM [Concomitant]
     Dosage: 40 MG, QD
     Route: 048
  12. VITAMIN D [Concomitant]
     Dosage: 6000 MG, UNK
     Route: 048
  13. DITROPAN XL [Concomitant]
     Dosage: 1 DF, QD
     Route: 048
  14. ACETYLCARNITINE [Concomitant]
     Route: 048
  15. LIORESAL [Concomitant]
     Route: 048
  16. ZOFRAN [Concomitant]
     Dosage: 1 DF, BID
     Route: 048
  17. GILENYA [Suspect]
     Indication: MULTIPLE SCLEROSIS
     Dosage: 0.5 MG, QD
     Route: 048
     Dates: start: 20110928
  18. FERROUS SULFATE TAB [Concomitant]
     Dosage: 1 DF, BID
     Route: 048
  19. NORCO [Concomitant]
     Dosage: 1 DF, Q4H
     Route: 048

REACTIONS (7)
  - CONFUSIONAL STATE [None]
  - PYREXIA [None]
  - MALAISE [None]
  - INCISION SITE PAIN [None]
  - INCISION SITE ERYTHEMA [None]
  - ABDOMINAL PAIN [None]
  - CONSTIPATION [None]
